FAERS Safety Report 20074864 (Version 1)
Quarter: 2021Q4

REPORT INFORMATION
  Report Type: Spontaneous
  Country: NL (occurrence: NL)
  Receive Date: 20211116
  Receipt Date: 20211116
  Transmission Date: 20220303
  Serious: Yes (Other)
  Sender: FDA-Public Use
  Company Number: NL-002147023-NVSC2021NL186295

PATIENT
  Age: 66 Year
  Sex: Female

DRUGS (5)
  1. PACLITAXEL [Suspect]
     Active Substance: PACLITAXEL
     Indication: Malignant ascites
     Dosage: UNK (DRIPPING IN OF THE SECOND COURSE)(SEVERAL MORE COURSES OF PACLITAXEL MONOTHERAPY)
     Route: 041
  2. PACLITAXEL [Suspect]
     Active Substance: PACLITAXEL
     Indication: Endometrial cancer metastatic
     Dosage: UNK (PALLIATIVE CHEMOTHERAPY))
     Route: 041
  3. PACLITAXEL [Suspect]
     Active Substance: PACLITAXEL
     Dosage: UNK (UNK UNK, UNKNOWN)
     Route: 065
  4. CARBOPLATIN [Suspect]
     Active Substance: CARBOPLATIN
     Indication: Malignant ascites
     Dosage: UNK (UNK UNK, UNKNOWN)
     Route: 065
  5. CARBOPLATIN [Suspect]
     Active Substance: CARBOPLATIN
     Indication: Endometrial cancer metastatic
     Dosage: UNK (UNK UNK, UNKNOWN(THIRD COURSE))
     Route: 065

REACTIONS (5)
  - Malignant ascites [Recovering/Resolving]
  - Disease recurrence [Recovering/Resolving]
  - Dyspnoea [Recovered/Resolved]
  - Hypersensitivity [Recovered/Resolved]
  - Product use in unapproved indication [Unknown]
